APPROVED DRUG PRODUCT: IMIPRAMINE HYDROCHLORIDE
Active Ingredient: IMIPRAMINE HYDROCHLORIDE
Strength: 25MG
Dosage Form/Route: TABLET;ORAL
Application: A040751 | Product #002 | TE Code: AB
Applicant: OXFORD PHARMACEUTICALS LLC
Approved: Feb 28, 2008 | RLD: No | RS: No | Type: RX